FAERS Safety Report 13457300 (Version 1)
Quarter: 2017Q2

REPORT INFORMATION
  Report Type: Spontaneous
  Country: US (occurrence: US)
  Receive Date: 20170419
  Receipt Date: 20170419
  Transmission Date: 20170830
  Serious: Yes (Other)
  Sender: FDA-Public Use
  Company Number: US-MALLINCKRODT-T201701362

PATIENT
  Sex: Male

DRUGS (1)
  1. H.P. ACTHAR [Suspect]
     Active Substance: CORTICOTROPIN
     Indication: SARCOIDOSIS
     Dosage: 80 UNITS (1 ML) EVERY 3 DAYS (EVERY 72 HOURS)
     Route: 058
     Dates: start: 20160602, end: 20170403

REACTIONS (2)
  - Colon cancer [Unknown]
  - Amnesia [Not Recovered/Not Resolved]
